FAERS Safety Report 25849759 (Version 2)
Quarter: 2025Q4

REPORT INFORMATION
  Report Type: Spontaneous
  Country: US (occurrence: US)
  Receive Date: 20250926
  Receipt Date: 20251023
  Transmission Date: 20260118
  Serious: Yes (Hospitalization)
  Sender: BRISTOL-MYERS SQUIBB COMPANY
  Company Number: US-BRISTOL-MYERS SQUIBB COMPANY-2025-131924

PATIENT
  Age: 87 Year
  Sex: Female

DRUGS (1)
  1. LENALIDOMIDE [Suspect]
     Active Substance: LENALIDOMIDE
     Indication: Mental status changes
     Dosage: FREQUENCY: TAKE 1 CAPSULE BY MOUTH DAILY ON 1-21 OUT OF 28 DAYS.

REACTIONS (1)
  - Hospitalisation [Not Recovered/Not Resolved]
